FAERS Safety Report 25238597 (Version 2)
Quarter: 2025Q2

REPORT INFORMATION
  Report Type: Report from Study
  Country: US (occurrence: US)
  Receive Date: 20250425
  Receipt Date: 20250617
  Transmission Date: 20250716
  Serious: Yes (Other)
  Sender: CSL BEHRING
  Company Number: US-BEH-2025202448

PATIENT
  Age: 51 Year
  Sex: Female

DRUGS (4)
  1. PRIVIGEN [Suspect]
     Active Substance: HUMAN IMMUNOGLOBULIN G
     Route: 065
     Dates: start: 20200214
  2. PRIVIGEN [Suspect]
     Active Substance: HUMAN IMMUNOGLOBULIN G
     Route: 065
  3. BENADRYL [Concomitant]
     Active Substance: DIPHENHYDRAMINE HYDROCHLORIDE
  4. TYLENOL [Concomitant]
     Active Substance: ACETAMINOPHEN

REACTIONS (29)
  - Choking [Unknown]
  - Meningitis aseptic [Unknown]
  - Herpes simplex [Unknown]
  - Skin infection [Unknown]
  - Bronchitis [Unknown]
  - Fatigue [Unknown]
  - Dyspnoea [Unknown]
  - Rhinitis [Unknown]
  - Tonsillitis [Unknown]
  - Dizziness [Unknown]
  - Oropharyngeal discomfort [Unknown]
  - Cough [Unknown]
  - Spinal pain [Recovered/Resolved]
  - Migraine [Recovered/Resolved]
  - Nasopharyngitis [Unknown]
  - Illness [Unknown]
  - Pharyngitis [Unknown]
  - Cardiac disorder [Unknown]
  - Asthenia [Unknown]
  - Pain [Recovered/Resolved]
  - Neck pain [Recovered/Resolved]
  - Back pain [Recovered/Resolved]
  - Immunoglobulins decreased [Unknown]
  - Illness [Unknown]
  - Fatigue [Recovered/Resolved]
  - Headache [Recovered/Resolved]
  - Impaired driving ability [Recovered/Resolved]
  - Vision blurred [Recovered/Resolved]
  - Pain [Recovered/Resolved]

NARRATIVE: CASE EVENT DATE: 20241201
